FAERS Safety Report 6788674-1 (Version None)
Quarter: 2010Q2

REPORT INFORMATION
  Report Type: 
  Country: None (occurrence: None)
  Receive Date: 20100623
  Receipt Date: 20080415
  Transmission Date: 20101027
  Serious: Yes (Other)
  Sender: FDA-Public Use
  Company Number: US-PFIZER INC-2008033239

PATIENT
  Sex: Female
  Weight: 61.2 kg

DRUGS (5)
  1. GEODON [Suspect]
     Indication: BIPOLAR DISORDER
     Route: 048
     Dates: start: 20061201
  2. EFFEXOR XR [Concomitant]
  3. LAMICTAL [Concomitant]
  4. WELLBUTRIN SR [Concomitant]
  5. ALPRAZOLAM [Concomitant]

REACTIONS (10)
  - AGEUSIA [None]
  - ASTHENIA [None]
  - CHROMATOPSIA [None]
  - DIZZINESS [None]
  - NAUSEA [None]
  - PARAESTHESIA [None]
  - TENSION [None]
  - TREMOR [None]
  - TRISMUS [None]
  - VISION BLURRED [None]
